FAERS Safety Report 21836516 (Version 1)
Quarter: 2023Q1

REPORT INFORMATION
  Report Type: Spontaneous
  Country: ES (occurrence: ES)
  Receive Date: 20230109
  Receipt Date: 20230109
  Transmission Date: 20230418
  Serious: No
  Sender: FDA-Public Use
  Company Number: ES-ALKEM LABORATORIES LIMITED-ES-ALKEM-2022-12616

PATIENT
  Age: 64 Year
  Sex: Male

DRUGS (2)
  1. IBUPROFEN [Suspect]
     Active Substance: IBUPROFEN
     Indication: Muscle contracture
     Dosage: UNK
     Route: 065
  2. TETRAZEPAM [Concomitant]
     Active Substance: TETRAZEPAM
     Indication: Muscle contracture
     Dosage: UNK
     Route: 065

REACTIONS (1)
  - Fixed eruption [Unknown]
